FAERS Safety Report 11376241 (Version 1)
Quarter: 2015Q3

REPORT INFORMATION
  Report Type: Spontaneous
  Country: TR (occurrence: TR)
  Receive Date: 20150813
  Receipt Date: 20150813
  Transmission Date: 20151125
  Serious: Yes (Other)
  Sender: FDA-Public Use
  Company Number: TR-ROXANE LABORATORIES, INC.-2015-RO-01312RO

PATIENT
  Age: 44 Year
  Sex: Male

DRUGS (1)
  1. PREDNISONE. [Suspect]
     Active Substance: PREDNISONE
     Indication: VIITH NERVE PARALYSIS
     Dosage: 60 MG
     Route: 065

REACTIONS (3)
  - Vision blurred [Recovered/Resolved]
  - Chest pain [Recovered/Resolved]
  - Coronary artery disease [Unknown]
